FAERS Safety Report 5006597-5 (Version None)
Quarter: 2006Q2

REPORT INFORMATION
  Report Type: 
  Country: None (occurrence: None)
  Receive Date: 20060519
  Receipt Date: 20060516
  Transmission Date: 20061013
  Serious: Yes (Other)
  Sender: FDA-Public Use
  Company Number: US-GLAXOSMITHKLINE-A0605822A

PATIENT
  Age: 42 Year
  Sex: Female

DRUGS (5)
  1. REQUIP [Suspect]
     Indication: RESTLESS LEGS SYNDROME
     Dosage: .25MG PER DAY
     Route: 048
     Dates: start: 20051201
  2. SYNTHROID [Concomitant]
  3. WELLBUTRIN [Concomitant]
  4. LEXAPRO [Concomitant]
  5. VITAMINS [Concomitant]

REACTIONS (6)
  - BODY TEMPERATURE DECREASED [None]
  - DEPRESSION [None]
  - DRUG INEFFECTIVE [None]
  - ESSENTIAL TREMOR [None]
  - SUICIDAL IDEATION [None]
  - TREMOR [None]
